FAERS Safety Report 25556781 (Version 5)
Quarter: 2025Q4

REPORT INFORMATION
  Report Type: Report from Study
  Country: US (occurrence: US)
  Receive Date: 20250715
  Receipt Date: 20251008
  Transmission Date: 20260118
  Serious: Yes (Hospitalization)
  Sender: BIOVITRUM
  Company Number: US-BIOVITRUM-2025-US-002444

PATIENT
  Age: 52 Year
  Sex: Female

DRUGS (3)
  1. DOPTELET [Suspect]
     Active Substance: AVATROMBOPAG MALEATE
     Indication: Immune thrombocytopenia
     Dosage: DAILY
     Route: 048
  2. DOPTELET [Suspect]
     Active Substance: AVATROMBOPAG MALEATE
     Dosage: DOSAGE DOUBLED/ TWICE DAILY
     Route: 048
  3. DOPTELET [Suspect]
     Active Substance: AVATROMBOPAG MALEATE
     Dosage: ONCE DAILY AS A SINGLE DOSE
     Route: 048

REACTIONS (16)
  - Gastrooesophageal reflux disease [Unknown]
  - Gingival bleeding [Recovered/Resolved]
  - Influenza [Unknown]
  - Product dose omission issue [Unknown]
  - Malaise [Unknown]
  - Cough [Unknown]
  - Epistaxis [Recovered/Resolved]
  - Escherichia infection [Unknown]
  - Platelet count decreased [Not Recovered/Not Resolved]
  - Fatigue [Unknown]
  - Insomnia [Unknown]
  - Illness [Unknown]
  - Back pain [Unknown]
  - Abdominal pain upper [Unknown]
  - Liver disorder [Unknown]
  - Drug ineffective [Unknown]
